FAERS Safety Report 9602712 (Version 1)
Quarter: 2013Q4

REPORT INFORMATION
  Report Type: Spontaneous
  Country: US (occurrence: US)
  Receive Date: 20131007
  Receipt Date: 20131007
  Transmission Date: 20140711
  Serious: No
  Sender: FDA-Public Use
  Company Number: US-PFIZER INC-2013281853

PATIENT
  Age: 9 Year
  Sex: Female
  Weight: 20.41 kg

DRUGS (1)
  1. CHILDREN^S MOTRIN [Suspect]
     Indication: HEADACHE
     Dosage: 5 ML, ONCE EVERY 8 HOURS
     Route: 048

REACTIONS (1)
  - Rash [Recovered/Resolved]
